FAERS Safety Report 7939978-8 (Version None)
Quarter: 2011Q4

REPORT INFORMATION
  Report Type: 
  Country: None (occurrence: None)
  Receive Date: 20111125
  Receipt Date: 20111006
  Transmission Date: 20120403
  Serious: Yes (Hospitalization)
  Sender: FDA-Public Use
  Company Number: AU-ROCHE-1011168

PATIENT
  Sex: Male
  Weight: 87 kg

DRUGS (2)
  1. XELODA [Suspect]
     Indication: RECTAL CANCER
     Route: 048
     Dates: start: 20110321
  2. OXALIPLATIN [Suspect]
     Indication: RECTAL CANCER
     Route: 042
     Dates: start: 20110321

REACTIONS (5)
  - SYNCOPE [None]
  - RENAL FAILURE [None]
  - DEHYDRATION [None]
  - HYPERCREATININAEMIA [None]
  - DIARRHOEA [None]
